FAERS Safety Report 5615877-1 (Version None)
Quarter: 2008Q1

REPORT INFORMATION
  Report Type: 
  Country: None (occurrence: None)
  Receive Date: 20080206
  Receipt Date: 20080123
  Transmission Date: 20080703
  Serious: Yes (Other)
  Sender: FDA-Public Use
  Company Number: EE-NOVOPROD-271353

PATIENT
  Age: 61 Year
  Sex: Male
  Weight: 86 kg

DRUGS (6)
  1. LEVEMIR [Suspect]
     Indication: INSULIN-REQUIRING TYPE 2 DIABETES MELLITUS
     Dosage: 74 IU, QD
     Route: 058
     Dates: start: 20071219, end: 20080110
  2. HUMULIN N [Concomitant]
     Dosage: 74 IU, QD
     Dates: end: 20071219
  3. HUMULIN N [Concomitant]
     Dates: start: 20080110
  4. NOVORAPID [Concomitant]
     Dosage: 30 IU, UNK
  5. METFORMIN HCL [Concomitant]
     Dosage: 850 MG, TID
  6. ATACAND [Concomitant]

REACTIONS (2)
  - ERYTHEMA [None]
  - FACE OEDEMA [None]
